FAERS Safety Report 24024492 (Version 2)
Quarter: 2024Q2

REPORT INFORMATION
  Report Type: Report from Study
  Country: PH (occurrence: PH)
  Receive Date: 20240628
  Receipt Date: 20240628
  Transmission Date: 20240716
  Serious: No
  Sender: FDA-Public Use
  Company Number: PH-ROCHE-3420433

PATIENT
  Age: 51 Year
  Sex: Female

DRUGS (1)
  1. PHESGO [Suspect]
     Active Substance: HYALURONIDASE-ZZXF\PERTUZUMAB\TRASTUZUMAB
     Indication: HER2 positive breast cancer
     Dosage: PHESGO 1200MG X 1 VIAL (LOADING DOSE) ;ONGOING: YES
     Route: 058

REACTIONS (2)
  - Immune system disorder [Recovered/Resolved]
  - Oral infection [Recovered/Resolved]
